FAERS Safety Report 18451580 (Version 4)
Quarter: 2025Q3

REPORT INFORMATION
  Report Type: Spontaneous
  Country: EU (occurrence: EU)
  Receive Date: 20201102
  Receipt Date: 20250930
  Transmission Date: 20251021
  Serious: Yes (Other)
  Sender: NOVARTIS
  Company Number: EU-ROCHE-2695642

PATIENT
  Age: 53 Year
  Sex: Female
  Weight: 83 kg

DRUGS (6)
  1. LETROZOLE [Suspect]
     Active Substance: LETROZOLE
     Indication: Product used for unknown indication
     Route: 065
     Dates: end: 20200601
  2. TAMOXIFEN [Suspect]
     Active Substance: TAMOXIFEN
     Indication: Product used for unknown indication
     Route: 065
     Dates: end: 20200601
  3. HERCEPTIN [Suspect]
     Active Substance: TRASTUZUMAB
     Indication: Breast neoplasm
     Dosage: 600 MG, 21D (EVERY 21 DAYS)
     Route: 065
     Dates: start: 201912, end: 202006
  4. HERCEPTIN [Suspect]
     Active Substance: TRASTUZUMAB
     Dosage: 600 MG, 21D (ONGOING, EVERY 21 DAYS)
     Route: 065
     Dates: start: 20200904
  5. PHESGO [Suspect]
     Active Substance: HYALURONIDASE-ZZXF\PERTUZUMAB\TRASTUZUMAB
     Indication: Metastases to liver
     Route: 058
  6. NADROPARIN CALCIUM [Concomitant]
     Active Substance: NADROPARIN CALCIUM
     Indication: Product used for unknown indication
     Route: 065

REACTIONS (9)
  - Pulmonary embolism [Recovered/Resolved]
  - Mucosal inflammation [Unknown]
  - Therapeutic product effect increased [Unknown]
  - Gait inability [Unknown]
  - Dyspnoea [Unknown]
  - Weight increased [Unknown]
  - Ill-defined disorder [Unknown]
  - Fatigue [Unknown]
  - Malaise [Unknown]
